FAERS Safety Report 19779548 (Version 2)
Quarter: 2021Q3

REPORT INFORMATION
  Report Type: Spontaneous
  Country: CH (occurrence: CH)
  Receive Date: 20210902
  Receipt Date: 20210903
  Transmission Date: 20211014
  Serious: Yes (Hospitalization)
  Sender: FDA-Public Use
  Company Number: NVSC2021CH197087

PATIENT
  Age: 50 Year
  Sex: Male

DRUGS (3)
  1. AMOXICILLIN SODIUM,POTASSIUM CLAVULANATE [Interacting]
     Active Substance: AMOXICILLIN\CLAVULANATE POTASSIUM
     Dosage: 625 MG, BID
     Route: 065
  2. AMOXICILLIN SODIUM,POTASSIUM CLAVULANATE [Interacting]
     Active Substance: AMOXICILLIN\CLAVULANATE POTASSIUM
     Indication: PNEUMONIA
     Dosage: 1 G, TID
     Route: 065
  3. CLARITHROMYCIN. [Suspect]
     Active Substance: CLARITHROMYCIN
     Indication: PNEUMONIA
     Dosage: 500 MG, BID
     Route: 065

REACTIONS (2)
  - Drug interaction [Unknown]
  - Mania [Recovering/Resolving]
